FAERS Safety Report 9112724 (Version 1)
Quarter: 2013Q1

REPORT INFORMATION
  Report Type: Report from Study
  Country: GB (occurrence: GB)
  Receive Date: 20130211
  Receipt Date: 20130211
  Transmission Date: 20140127
  Serious: Yes (Other)
  Sender: FDA-Public Use
  Company Number: GB-ACTELION-A-CH2013-78853

PATIENT
  Age: 29 Year
  Sex: Female

DRUGS (2)
  1. TRACLEER [Suspect]
     Indication: PULMONARY ARTERIAL HYPERTENSION
     Dosage: 125 MG, UNK
     Route: 048
  2. TRACLEER [Suspect]
     Dosage: UNK
     Route: 048
     Dates: start: 2008

REACTIONS (4)
  - Cardiac pacemaker insertion [Unknown]
  - Flushing [Not Recovered/Not Resolved]
  - Burning sensation [Not Recovered/Not Resolved]
  - No therapeutic response [Unknown]
